FAERS Safety Report 10484777 (Version 2)
Quarter: 2014Q4

REPORT INFORMATION
  Report Type: Spontaneous
  Country: DK (occurrence: FR)
  Receive Date: 20140930
  Receipt Date: 20141104
  Transmission Date: 20150528
  Serious: Yes (Other)
  Sender: FDA-Public Use
  Company Number: FR-FRI-1000071077

PATIENT
  Age: 92 Year
  Sex: Female

DRUGS (21)
  1. VALIUM [Suspect]
     Active Substance: DIAZEPAM
     Dosage: 10 MG / 2 ML
     Route: 058
     Dates: start: 20140713
  2. EFFEXOR LP [Suspect]
     Active Substance: VENLAFAXINE HYDROCHLORIDE
     Dosage: 75 MG
     Route: 048
     Dates: start: 20140730
  3. LASILIX [Concomitant]
     Active Substance: FUROSEMIDE
     Dosage: 40 MG
     Route: 048
     Dates: end: 20140719
  4. DIFFU K [Concomitant]
     Active Substance: POTASSIUM CHLORIDE
     Dosage: 3 DF
     Route: 048
     Dates: end: 20140801
  5. AMIODARONE [Concomitant]
     Active Substance: AMIODARONE
     Dosage: 600 MG
     Route: 048
  6. ROCEPHINE [Suspect]
     Active Substance: CEFTRIAXONE SODIUM
     Dosage: 1 G
     Route: 058
     Dates: start: 20140714, end: 20140722
  7. PANTOPRAZOLE [Concomitant]
     Active Substance: PANTOPRAZOLE SODIUM
     Dosage: 40 MG
     Route: 048
  8. CITALOPRAM [Suspect]
     Active Substance: CITALOPRAM HYDROBROMIDE
     Dosage: 20 MG/ 0.5 ML
     Route: 041
     Dates: start: 20140718, end: 20140720
  9. DURAGESIC [Suspect]
     Active Substance: FENTANYL
     Dosage: 12.6 MG / 31.5 CM2
     Route: 003
     Dates: start: 20140715
  10. LAMALINE [Suspect]
     Active Substance: ACETAMINOPHEN\CAFFEINE\OPIUM
     Dosage: 2 DF
     Route: 048
     Dates: start: 20140711, end: 20140716
  11. SPECIAFOLDINE [Concomitant]
     Active Substance: FOLIC ACID
     Dosage: 1 DF
     Route: 048
     Dates: end: 20140717
  12. RISPERIDONE MYLAN [Suspect]
     Active Substance: RISPERIDONE
     Dosage: 1 MG / ML
     Route: 048
     Dates: start: 20140730
  13. NORSET [Suspect]
     Active Substance: MIRTAZAPINE
     Dosage: 15 MG
     Route: 048
     Dates: start: 20140712, end: 20140718
  14. LEVOTHYROX [Concomitant]
     Active Substance: LEVOTHYROXINE
     Dosage: 1 DF
     Route: 048
  15. CITALOPRAM [Suspect]
     Active Substance: CITALOPRAM HYDROBROMIDE
     Dosage: 1 DF
     Route: 048
     Dates: start: 20140721, end: 20140729
  16. AMOXICILLINE [Suspect]
     Active Substance: AMOXICILLIN
     Dosage: 3 G
     Route: 048
     Dates: start: 20140711, end: 20140713
  17. PARACETAMOL [Concomitant]
     Active Substance: ACETAMINOPHEN
     Dosage: 3 G
     Route: 048
  18. OXYBUTYNINE [Concomitant]
     Dosage: 10 MG
     Route: 048
     Dates: end: 20140711
  19. LOXAPAC [Suspect]
     Active Substance: LOXAPINE SUCCINATE
     Dosage: 50 MG/ 2 ML
     Route: 058
     Dates: start: 20140712, end: 20140724
  20. LOVENOX [Suspect]
     Active Substance: ENOXAPARIN SODIUM
     Dosage: 0.4 ML
     Route: 058
     Dates: start: 20140711, end: 20140731
  21. COLCHICINE OPOCALCIUM [Suspect]
     Active Substance: COLCHICINE
     Dosage: 0.5 DF
     Route: 048
     Dates: start: 20140725, end: 20140731

REACTIONS (2)
  - Anaemia [Not Recovered/Not Resolved]
  - Leukopenia [Not Recovered/Not Resolved]

NARRATIVE: CASE EVENT DATE: 20140801
